FAERS Safety Report 6533042-0 (Version None)
Quarter: 2010Q1

REPORT INFORMATION
  Report Type: 
  Country: None (occurrence: None)
  Receive Date: 20100111
  Receipt Date: 20100107
  Transmission Date: 20100710
  Serious: Yes (Other)
  Sender: FDA-Public Use
  Company Number: US-PFIZER INC-2009309033

PATIENT
  Age: 65 Year
  Sex: Female

DRUGS (4)
  1. TOVIAZ [Suspect]
     Dosage: UNK
  2. DETROL [Suspect]
     Dosage: UNK
  3. MODAFINIL [Suspect]
     Dosage: UNK
  4. ARMODAFINIL [Suspect]
     Dosage: UNK

REACTIONS (1)
  - STEVENS-JOHNSON SYNDROME [None]
